FAERS Safety Report 5457301-8 (Version None)
Quarter: 2007Q3

REPORT INFORMATION
  Report Type: 
  Country: None (occurrence: None)
  Receive Date: 20070813
  Receipt Date: 20070116
  Transmission Date: 20080115
  Serious: Yes (Hospitalization)
  Sender: FDA-Public Use
  Company Number: 20073465

PATIENT
  Sex: Female

DRUGS (1)
  1. LIORESAL [Suspect]
     Indication: MUSCLE SPASTICITY
     Dosage: MCG,DAILY,INTRATHECAL
     Route: 037

REACTIONS (4)
  - DRUG INEFFECTIVE [None]
  - HYPERTONIA [None]
  - INSOMNIA [None]
  - PAIN [None]
